FAERS Safety Report 18468898 (Version 6)
Quarter: 2021Q1

REPORT INFORMATION
  Report Type: Spontaneous
  Country: US (occurrence: US)
  Receive Date: 20201105
  Receipt Date: 20210315
  Transmission Date: 20210419
  Serious: No
  Sender: FDA-Public Use
  Company Number: US-ELI_LILLY_AND_COMPANY-US202010006933

PATIENT
  Age: 36 Year
  Sex: Male

DRUGS (2)
  1. EMGALITY [Suspect]
     Active Substance: GALCANEZUMAB-GNLM
     Indication: MIGRAINE
     Dosage: 120 MG, UNKNOWN
     Route: 065
  2. PREDNISONE. [Concomitant]
     Active Substance: PREDNISONE
     Indication: PRODUCT USED FOR UNKNOWN INDICATION
     Dosage: UNK UNK, UNKNOWN
     Route: 065

REACTIONS (19)
  - Oedema peripheral [Not Recovered/Not Resolved]
  - Pyrexia [Recovered/Resolved]
  - Hypertension [Not Recovered/Not Resolved]
  - Injection site mass [Unknown]
  - Pain in extremity [Not Recovered/Not Resolved]
  - Blood creatine increased [Unknown]
  - Nasal congestion [Unknown]
  - Injection site swelling [Unknown]
  - Injection site erythema [Unknown]
  - Fluid retention [Unknown]
  - Eosinophil count increased [Unknown]
  - Hypersensitivity [Not Recovered/Not Resolved]
  - Dyspnoea [Not Recovered/Not Resolved]
  - Peripheral swelling [Not Recovered/Not Resolved]
  - Poor quality sleep [Not Recovered/Not Resolved]
  - Rash [Recovering/Resolving]
  - Inappropriate schedule of product administration [Unknown]
  - Eosinophil count decreased [Unknown]
  - Night sweats [Not Recovered/Not Resolved]
